FAERS Safety Report 5315750-2 (Version None)
Quarter: 2007Q2

REPORT INFORMATION
  Report Type: 
  Country: None (occurrence: None)
  Receive Date: 20070503
  Receipt Date: 20070427
  Transmission Date: 20071010
  Serious: Yes (Other)
  Sender: FDA-Public Use
  Company Number: DE-GLAXOSMITHKLINE-B0464894A

PATIENT
  Age: 56 Year
  Sex: Female

DRUGS (2)
  1. PANADOL [Suspect]
     Dosage: 1500MG PER DAY
  2. ALGINOR [Concomitant]

REACTIONS (1)
  - HYPERTENSIVE CRISIS [None]
